FAERS Safety Report 10913443 (Version 2)
Quarter: 2015Q1

REPORT INFORMATION
  Report Type: Spontaneous
  Country: US (occurrence: US)
  Receive Date: 20150313
  Receipt Date: 20150324
  Transmission Date: 20150721
  Serious: No
  Sender: FDA-Public Use
  Company Number: US-ASTRAZENECA-2015SE20355

PATIENT
  Age: 26027 Day
  Sex: Male
  Weight: 86.2 kg

DRUGS (11)
  1. TOPROL XL [Suspect]
     Active Substance: METOPROLOL SUCCINATE
     Indication: MALIGNANT HYPERTENSION
     Dosage: 50MG TABLET CUT IN HALF FOR 25MG TWICE DAILY
     Route: 048
     Dates: start: 2013
  2. FLOMAX [Concomitant]
     Active Substance: TAMSULOSIN HYDROCHLORIDE
     Indication: URINARY TRACT DISORDER
     Route: 048
     Dates: start: 2014
  3. TOPROL XL [Suspect]
     Active Substance: METOPROLOL SUCCINATE
     Indication: BLOOD PRESSURE ABNORMAL
     Route: 048
     Dates: start: 20150216
  4. FINASTERIDE. [Concomitant]
     Active Substance: FINASTERIDE
     Indication: URINARY TRACT DISORDER
     Route: 048
     Dates: start: 2014
  5. VITAMINS [Concomitant]
     Active Substance: VITAMINS
  6. TYLENOL [Concomitant]
     Active Substance: ACETAMINOPHEN
  7. TOPROL XL [Suspect]
     Active Substance: METOPROLOL SUCCINATE
     Indication: BLOOD PRESSURE ABNORMAL
     Dosage: 50MG TABLET CUT IN HALF FOR 25MG TWICE DAILY
     Route: 048
     Dates: start: 2013
  8. TOPROL XL [Suspect]
     Active Substance: METOPROLOL SUCCINATE
     Indication: BLOOD PRESSURE ABNORMAL
     Dosage: WATKIN PHARMA, 25 MG BID
     Route: 048
     Dates: start: 2014
  9. TOPROL XL [Suspect]
     Active Substance: METOPROLOL SUCCINATE
     Indication: MALIGNANT HYPERTENSION
     Route: 048
     Dates: start: 20150216
  10. TOPROL XL [Suspect]
     Active Substance: METOPROLOL SUCCINATE
     Indication: MALIGNANT HYPERTENSION
     Dosage: WATKIN PHARMA, 25 MG BID
     Route: 048
     Dates: start: 2014
  11. ZETIA [Concomitant]
     Active Substance: EZETIMIBE
     Indication: BLOOD CHOLESTEROL ABNORMAL
     Route: 048
     Dates: start: 2013

REACTIONS (6)
  - Visual impairment [Recovered/Resolved]
  - Migraine [Unknown]
  - Migraine [Recovered/Resolved]
  - Drug prescribing error [Recovered/Resolved]
  - Off label use [Unknown]
  - Intentional product misuse [Not Recovered/Not Resolved]

NARRATIVE: CASE EVENT DATE: 201301
